FAERS Safety Report 21040210 (Version 5)
Quarter: 2024Q1

REPORT INFORMATION
  Report Type: Report from Study
  Country: US (occurrence: US)
  Receive Date: 20220704
  Receipt Date: 20240112
  Transmission Date: 20240410
  Serious: No
  Sender: FDA-Public Use
  Company Number: US-NOVARTISTESTPH-NVSC2022US151792

PATIENT
  Sex: Female

DRUGS (1)
  1. KESIMPTA [Suspect]
     Active Substance: OFATUMUMAB
     Indication: Product used for unknown indication
     Dosage: UNK
     Route: 065

REACTIONS (6)
  - Malaise [Unknown]
  - Feeling abnormal [Unknown]
  - Inappropriate schedule of product administration [Unknown]
  - Product use issue [Unknown]
  - Product dose omission issue [Unknown]
  - Muscular weakness [Unknown]
